FAERS Safety Report 5350791-0 (Version None)
Quarter: 2007Q2

REPORT INFORMATION
  Report Type: 
  Country: None (occurrence: None)
  Receive Date: 20070606
  Receipt Date: 20070606
  Transmission Date: 20071010
  Serious: Yes (Other)
  Sender: FDA-Public Use
  Company Number: None

PATIENT
  Sex: Male
  Weight: 84.369 kg

DRUGS (2)
  1. TRASYLOL [Suspect]
     Indication: DRUG THERAPY
     Dates: start: 20070425, end: 20070425
  2. TRASYLOL [Suspect]
     Indication: POST PROCEDURAL HAEMORRHAGE
     Dates: start: 20070425, end: 20070425

REACTIONS (1)
  - CEREBROVASCULAR ACCIDENT [None]
